FAERS Safety Report 19786089 (Version 1)
Quarter: 2021Q3

REPORT INFORMATION
  Report Type: Spontaneous
  Country: CA (occurrence: CA)
  Receive Date: 20210903
  Receipt Date: 20210903
  Transmission Date: 20211014
  Serious: Yes (Disabling)
  Sender: FDA-Public Use
  Company Number: CA-ACCORD-237033

PATIENT
  Age: 68 Year
  Sex: Female

DRUGS (4)
  1. METHOTREXATE. [Suspect]
     Active Substance: METHOTREXATE
     Indication: RHEUMATOID ARTHRITIS
     Dosage: 1 EVERY 1 WEEKS
     Route: 048
  2. XELJANZ XR [Concomitant]
     Active Substance: TOFACITINIB CITRATE
     Indication: RHEUMATOID ARTHRITIS
     Dosage: 1 EVERY 1 DAYS
     Route: 048
  3. HYDROXYCHLOROQUINE [Concomitant]
     Active Substance: HYDROXYCHLOROQUINE
  4. SIMPONI [Concomitant]
     Active Substance: GOLIMUMAB
     Dosage: 1 EVERY 1 MONTHS
     Route: 058

REACTIONS (7)
  - Pain [Unknown]
  - Back pain [Unknown]
  - Hypoaesthesia [Unknown]
  - Malaise [Unknown]
  - Arthritis [Unknown]
  - Condition aggravated [Unknown]
  - Hepatic enzyme increased [Unknown]
